FAERS Safety Report 5708186-3 (Version None)
Quarter: 2008Q2

REPORT INFORMATION
  Report Type: 
  Country: None (occurrence: None)
  Receive Date: 20080417
  Receipt Date: 20080415
  Transmission Date: 20081010
  Serious: Yes (Other)
  Sender: FDA-Public Use
  Company Number: D0056925A

PATIENT
  Sex: Female

DRUGS (1)
  1. ELONTRIL [Suspect]
     Dosage: 300MG PER DAY
     Route: 048

REACTIONS (3)
  - APHASIA [None]
  - INTENTIONAL OVERDOSE [None]
  - SALIVARY HYPERSECRETION [None]
